FAERS Safety Report 15985727 (Version 2)
Quarter: 2019Q1

REPORT INFORMATION
  Report Type: Spontaneous
  Country: DE (occurrence: DE)
  Receive Date: 20190220
  Receipt Date: 20190222
  Transmission Date: 20190418
  Serious: Yes (Death, Hospitalization, Disabling, Other)
  Sender: FDA-Public Use
  Company Number: PHHY2019DE036293

PATIENT
  Age: 76 Year
  Sex: Female
  Weight: 65 kg

DRUGS (28)
  1. FOLINIC ACID [Suspect]
     Active Substance: LEUCOVORIN
     Dosage: 200 MG, Q2W
     Route: 042
     Dates: start: 20130912, end: 20131028
  2. EUTHYROX [Concomitant]
     Active Substance: LEVOTHYROXINE SODIUM
     Indication: HYPOTHYROIDISM
     Dosage: 100 UG, QD
     Route: 065
     Dates: start: 1980
  3. URACID [Concomitant]
     Indication: PRODUCT USED FOR UNKNOWN INDICATION
     Dosage: 100 MG, QD
     Route: 065
     Dates: start: 20140113
  4. FOLINIC ACID [Suspect]
     Active Substance: LEUCOVORIN
     Dosage: 246 MG, Q2W
     Route: 042
     Dates: start: 20131210, end: 20140108
  5. 5-FU HEXAL [Suspect]
     Active Substance: FLUOROURACIL
     Dosage: 3908 MG, Q2W
     Route: 040
     Dates: start: 20130912, end: 20131128
  6. 5-FU HEXAL [Suspect]
     Active Substance: FLUOROURACIL
     Dosage: 1 DF, QD (DURATION OF 24 H)
     Route: 041
     Dates: start: 20130912, end: 20130926
  7. CAPTOPRIL. [Concomitant]
     Active Substance: CAPTOPRIL
     Indication: HYPERTENSION
     Dosage: 100 MG, QD
     Route: 048
     Dates: start: 1993
  8. NIFEDIPINE. [Concomitant]
     Active Substance: NIFEDIPINE
     Indication: HYPERTENSION
     Dosage: 2 DF, QD (DOSE: 5-10 MG, FORM: 10 MG, 20 MG)
     Route: 048
     Dates: start: 1993
  9. OXALIPLATIN. [Suspect]
     Active Substance: OXALIPLATIN
     Indication: RECTAL CANCER METASTATIC
     Dosage: UNK
     Route: 065
  10. 5-FU HEXAL [Suspect]
     Active Substance: FLUOROURACIL
     Dosage: 492 MG, Q2W
     Route: 041
     Dates: start: 20131210, end: 20140122
  11. 5-FU HEXAL [Suspect]
     Active Substance: FLUOROURACIL
     Dosage: 600 MG, Q2W
     Route: 040
     Dates: start: 20140108, end: 20140109
  12. DEXAMETHASONE. [Concomitant]
     Active Substance: DEXAMETHASONE
     Indication: VOMITING
     Dosage: 12 MG, CYCLIC
     Route: 048
     Dates: start: 20130912, end: 20131028
  13. IRINOTECAN [Suspect]
     Active Substance: IRINOTECAN
     Indication: RECTAL CANCER METASTATIC
     Dosage: 221 MG, Q2W
     Route: 042
     Dates: start: 20140107, end: 20140121
  14. 5-FU HEXAL [Suspect]
     Active Substance: FLUOROURACIL
     Dosage: 2950 MG, Q2W
     Route: 040
     Dates: start: 20131210, end: 20131212
  15. 5-FU HEXAL [Suspect]
     Active Substance: FLUOROURACIL
     Dosage: 492 MG, UNK
     Route: 041
     Dates: start: 20131210, end: 20140107
  16. FOLINIC ACID [Suspect]
     Active Substance: LEUCOVORIN
     Indication: RECTAL CANCER METASTATIC
     Dosage: 570 MG, Q2W
     Route: 042
     Dates: start: 20130912, end: 20130912
  17. AVASTIN [Suspect]
     Active Substance: BEVACIZUMAB
     Indication: RECTAL CANCER METASTATIC
     Dosage: 325 MG, CYCLIC (5 MG/KG4 CYCLES IN TOTAL, LAST DOSE PRIOR TO SAE: 28 OCT 2013)
     Route: 042
     Dates: start: 20130912, end: 20131112
  18. KEVATRIL [Concomitant]
     Active Substance: GRANISETRON HYDROCHLORIDE
     Indication: VOMITING
     Dosage: 3 MG, CYCLIC
     Route: 042
     Dates: start: 20130912, end: 20131028
  19. 5-FU HEXAL [Suspect]
     Active Substance: FLUOROURACIL
     Indication: PRODUCT USED FOR UNKNOWN INDICATION
     Dosage: 651 MG, Q2W
     Route: 041
     Dates: start: 20130912, end: 20131126
  20. 5-FU HEXAL [Suspect]
     Active Substance: FLUOROURACIL
     Dosage: 492 MG, UNK
     Route: 041
     Dates: start: 20131210, end: 20140107
  21. 5-FU HEXAL [Suspect]
     Active Substance: FLUOROURACIL
     Dosage: 738 MG, UNK
     Route: 040
     Dates: start: 20140107, end: 20140108
  22. CAPTOPRIL. [Concomitant]
     Active Substance: CAPTOPRIL
     Dosage: 50 MG, QD (DAILY DOSE: 100 MG MILLGRAM(S) EVERY DAYS)
     Route: 048
     Dates: start: 1993
  23. 5-FU HEXAL [Suspect]
     Active Substance: FLUOROURACIL
     Dosage: 400 MG, UNK
     Route: 040
  24. FOLINIC ACID [Suspect]
     Active Substance: LEUCOVORIN
     Dosage: 326 MG, Q2W
     Route: 042
     Dates: start: 20130913, end: 20131126
  25. FOLINIC ACID [Suspect]
     Active Substance: LEUCOVORIN
     Dosage: 246 MG, UNK
     Route: 042
     Dates: start: 20140107, end: 20140121
  26. CETUXIMAB. [Concomitant]
     Active Substance: CETUXIMAB
     Indication: PRODUCT USED FOR UNKNOWN INDICATION
     Dosage: 400 MG, QD (TOTAL)
     Route: 065
     Dates: start: 20131210, end: 20131210
  27. 5-FU HEXAL [Suspect]
     Active Substance: FLUOROURACIL
     Dosage: 400 MG, UNK
     Route: 041
     Dates: start: 20130912, end: 20131028
  28. 5-FU HEXAL [Suspect]
     Active Substance: FLUOROURACIL
     Dosage: 738 MG, UNK
     Route: 041
     Dates: start: 20140121, end: 20140123

REACTIONS (6)
  - Musculoskeletal pain [Recovered/Resolved]
  - Hydronephrosis [Recovered/Resolved]
  - Rectal cancer metastatic [Fatal]
  - Abdominal pain [Recovered/Resolved]
  - Deep vein thrombosis [Recovering/Resolving]
  - Malignant neoplasm progression [Fatal]

NARRATIVE: CASE EVENT DATE: 20131112
